FAERS Safety Report 9694988 (Version 2)
Quarter: 2013Q4

REPORT INFORMATION
  Report Type: Spontaneous
  Country: IT (occurrence: IT)
  Receive Date: 20131119
  Receipt Date: 20131119
  Transmission Date: 20140711
  Serious: Yes (Hospitalization, Other)
  Sender: FDA-Public Use
  Company Number: IT-009507513-2012SP014776

PATIENT
  Age: 57 Year
  Sex: Male

DRUGS (7)
  1. BOCEPREVIR [Suspect]
     Dosage: 800 MG, TID
     Route: 048
     Dates: start: 20111011, end: 20120315
  2. RIBAVIRIN [Suspect]
     Dosage: UNK
     Route: 048
     Dates: start: 2003
  3. PEGASYS [Suspect]
     Indication: HEPATITIS C
     Dosage: 180 MICROGRAM, QW
     Route: 058
     Dates: start: 20110912, end: 20120315
  4. PEGASYS [Suspect]
     Dosage: UNK
     Dates: start: 2003
  5. COPEGUS [Suspect]
     Indication: HEPATITIS C
     Dosage: 800 MG, QD
     Route: 048
     Dates: start: 20110912, end: 20120315
  6. COPEGUS [Suspect]
     Dosage: 1000MG DAILY
  7. EPOETIN [Concomitant]
     Indication: HAEMOGLOBIN DECREASED

REACTIONS (5)
  - Epilepsy [Recovered/Resolved]
  - Grand mal convulsion [Unknown]
  - Loss of consciousness [Unknown]
  - Anaemia [Unknown]
  - Drug ineffective [Unknown]
